FAERS Safety Report 4634373-1 (Version None)
Quarter: 2005Q2

REPORT INFORMATION
  Report Type: 
  Country: None (occurrence: None)
  Receive Date: 20050411
  Receipt Date: 20050328
  Transmission Date: 20051028
  Serious: Yes (Hospitalization)
  Sender: FDA-Public Use
  Company Number: 2005050774

PATIENT
  Age: 36 Year
  Sex: Female

DRUGS (2)
  1. FRAGMIN [Suspect]
     Indication: DEEP VEIN THROMBOSIS
     Dosage: 16000 I.U. (8000 I.U., 2 IN 1 D), SUBCUTANEOUS
     Route: 058
  2. HEPARIN-FRACTION, CALCIUM SALT (HEPARIN-FRACTION, CALCIUM SALT) [Suspect]
     Indication: DEEP VEIN THROMBOSIS
     Dosage: 11400 I.U. (5700 I.U., 2 IN 1 D), SUBCUTANEOUS
     Route: 058

REACTIONS (5)
  - DRUG EXPOSURE DURING PREGNANCY [None]
  - ERYTHEMA [None]
  - INJECTION SITE INDURATION [None]
  - INJECTION SITE PRURITUS [None]
  - SKIN INDURATION [None]
